FAERS Safety Report 8579608-8 (Version None)
Quarter: 2012Q3

REPORT INFORMATION
  Report Type: 
  Country: None (occurrence: None)
  Receive Date: 20120808
  Receipt Date: 20120731
  Transmission Date: 20120928
  Serious: Yes (Other)
  Sender: FDA-Public Use
  Company Number: JP-VERTEX PHARMACEUTICALS INC.-AE-2012-011480

PATIENT
  Age: 56 Year
  Sex: Female

DRUGS (11)
  1. TELAVIC (TELAPREVIR) [Suspect]
     Route: 048
     Dates: start: 20120716, end: 20120717
  2. PEGINTERFERON ALFA-2B [Concomitant]
     Route: 058
     Dates: start: 20120713
  3. ZETIA [Concomitant]
     Route: 048
  4. URSODIOL [Concomitant]
     Route: 048
  5. CANDESARTAN CILEXETIL [Concomitant]
     Route: 048
  6. TELAVIC (TELAPREVIR) [Suspect]
     Indication: HEPATITIS C
     Route: 048
     Dates: start: 20120713, end: 20120715
  7. GLIMEPIRIDE [Concomitant]
     Route: 048
  8. JANUVIA [Concomitant]
     Route: 048
  9. RIBAVIRIN [Concomitant]
     Route: 048
     Dates: start: 20120713, end: 20120717
  10. GLIMEPIRIDE [Concomitant]
     Route: 048
  11. MIGLITOL [Concomitant]
     Route: 048

REACTIONS (1)
  - BLOOD CREATININE INCREASED [None]
